FAERS Safety Report 4389342-6 (Version None)
Quarter: 2004Q3

REPORT INFORMATION
  Report Type: 
  Country: None (occurrence: None)
  Receive Date: 20040701
  Receipt Date: 20040701
  Transmission Date: 20050211
  Serious: Yes (Other)
  Sender: FDA-Public Use
  Company Number: None

PATIENT
  Age: 34 Year
  Sex: Male

DRUGS (3)
  1. CLINDAMYCIN HCL [Suspect]
     Indication: ABSCESS BACTERIAL
     Dosage: TWO CAP/TAB 4 X DAILY BY MOUTH
     Dates: start: 20040324
  2. CLINDAMYCIN HCL [Suspect]
     Indication: STAPHYLOCOCCAL INFECTION
     Dosage: TWO CAP/TAB 4 X DAILY BY MOUTH
     Dates: start: 20040324
  3. CEFTRIAXONE [Concomitant]

REACTIONS (2)
  - ABDOMINAL PAIN [None]
  - DIARRHOEA [None]
